FAERS Safety Report 23002785 (Version 2)
Quarter: 2024Q3

REPORT INFORMATION
  Report Type: Report from Study
  Country: US (occurrence: US)
  Receive Date: 20230928
  Receipt Date: 20240823
  Transmission Date: 20241016
  Serious: Yes (Hospitalization)
  Sender: MYLAN
  Company Number: US-MYLANLABS-2023M1100858

PATIENT
  Sex: Male
  Weight: 68.04 kg

DRUGS (1)
  1. LIPITOR [Suspect]
     Active Substance: ATORVASTATIN CALCIUM
     Indication: Product used for unknown indication
     Dosage: 20 MILLIGRAM, QD
     Route: 065

REACTIONS (6)
  - Hospitalisation [Unknown]
  - Bronchitis [Unknown]
  - Arthritis [Unknown]
  - Cough [Recovered/Resolved]
  - Hypersensitivity [Unknown]
  - Hepatic enzyme increased [Recovered/Resolved]
